FAERS Safety Report 17195968 (Version 1)
Quarter: 2019Q4

REPORT INFORMATION
  Report Type: Spontaneous
  Country: JP (occurrence: JP)
  Receive Date: 20191224
  Receipt Date: 20191224
  Transmission Date: 20200122
  Serious: Yes (Hospitalization, Other)
  Sender: FDA-Public Use
  Company Number: JP-ACTELION-A-CH2019-199615

PATIENT
  Age: 64 Year
  Sex: Female

DRUGS (9)
  1. SARPOGRELATE [Concomitant]
     Active Substance: SARPOGRELATE
  2. ALPROSTADIL. [Concomitant]
     Active Substance: ALPROSTADIL
  3. ARGATROBAN. [Concomitant]
     Active Substance: ARGATROBAN
  4. BERAPROST SODIUM [Concomitant]
     Active Substance: BERAPROST SODIUM
  5. TRACLEER [Suspect]
     Active Substance: BOSENTAN
     Indication: SYSTEMIC SCLERODERMA
     Dosage: UNK
     Route: 048
     Dates: start: 201503, end: 201608
  6. TOCOPHEROL [Concomitant]
     Active Substance: TOCOPHEROL
  7. TACROLIMUS. [Concomitant]
     Active Substance: TACROLIMUS
     Dosage: 3 MG, QD
  8. NICOTINATE [Concomitant]
  9. CLOPIDOGREL [Concomitant]
     Active Substance: CLOPIDOGREL BISULFATE

REACTIONS (9)
  - Peripheral ischaemia [Recovering/Resolving]
  - Necrosis [Recovered/Resolved]
  - Macroangiopathy [Recovering/Resolving]
  - Angioplasty [Recovering/Resolving]
  - Amputation [Recovered/Resolved]
  - Pain in extremity [Unknown]
  - Osteotomy [Recovered/Resolved]
  - Blister [Recovered/Resolved]
  - Skin ulcer [Recovered/Resolved]

NARRATIVE: CASE EVENT DATE: 201612
